FAERS Safety Report 6696222-X (Version None)
Quarter: 2010Q2

REPORT INFORMATION
  Report Type: 
  Country: None (occurrence: None)
  Receive Date: 20100426
  Receipt Date: 20100414
  Transmission Date: 20101027
  Serious: Yes (Hospitalization, Other)
  Sender: FDA-Public Use
  Company Number: US-AMGEN-QUU406354

PATIENT
  Sex: Female

DRUGS (2)
  1. ENBREL [Suspect]
     Indication: RHEUMATOID ARTHRITIS
     Route: 058
     Dates: start: 19990701
  2. PLAQUENIL [Concomitant]
     Route: 048

REACTIONS (3)
  - ARTHRITIS [None]
  - GASTRIC OPERATION [None]
  - PNEUMONIA [None]
